FAERS Safety Report 17310566 (Version 4)
Quarter: 2020Q1

REPORT INFORMATION
  Report Type: Report from Study
  Country: JP (occurrence: JP)
  Receive Date: 20200123
  Receipt Date: 20200313
  Transmission Date: 20200409
  Serious: Yes (Other)
  Sender: FDA-Public Use
  Company Number: JP-ALLERGAN-2002554US

PATIENT
  Sex: Female

DRUGS (6)
  1. BOTULINUM TOXIN TYPE A - GENERAL (9060X) [Suspect]
     Active Substance: BOTULINUM TOXIN TYPE A
     Dosage: 1.25 UNITS, SINGLE
     Route: 030
     Dates: start: 20190322, end: 20190322
  2. BOTULINUM TOXIN TYPE A - GENERAL (9060X) [Suspect]
     Active Substance: BOTULINUM TOXIN TYPE A
     Dosage: 1.25 UNITS, SINGLE
     Route: 030
     Dates: start: 20190614, end: 20190614
  3. BOTULINUM TOXIN TYPE A - GENERAL (9060X) [Suspect]
     Active Substance: BOTULINUM TOXIN TYPE A
     Indication: SPASMODIC DYSPHONIA
     Dosage: 1.25 UNITS, SINGLE
     Route: 030
     Dates: start: 20190928, end: 20190928
  4. BOTULINUM TOXIN TYPE A - GENERAL (9060X) [Suspect]
     Active Substance: BOTULINUM TOXIN TYPE A
     Dosage: 2.5 UNITS, SINGLE
     Route: 030
     Dates: start: 20180525, end: 20180525
  5. BOTULINUM TOXIN TYPE A - GENERAL (9060X) [Suspect]
     Active Substance: BOTULINUM TOXIN TYPE A
     Dosage: 1.25 UNITS, SINGLE
     Route: 030
     Dates: start: 20180727, end: 20180727
  6. BOTULINUM TOXIN TYPE A - GENERAL (9060X) [Suspect]
     Active Substance: BOTULINUM TOXIN TYPE A
     Dosage: 2.5 UNITS, SINGLE
     Route: 030
     Dates: start: 20181130, end: 20181130

REACTIONS (3)
  - Nasopharyngitis [Recovered/Resolved]
  - Dysphonia [Recovered/Resolved]
  - Choking [Recovered/Resolved]

NARRATIVE: CASE EVENT DATE: 20190125
